FAERS Safety Report 7602946-X (Version None)
Quarter: 2011Q3

REPORT INFORMATION
  Report Type: 
  Country: None (occurrence: None)
  Receive Date: 20110712
  Receipt Date: 20110323
  Transmission Date: 20111222
  Serious: No
  Sender: FDA-Public Use
  Company Number: A0919543A

PATIENT
  Age: 78 Year
  Sex: Male

DRUGS (7)
  1. CRESTOR [Concomitant]
  2. ISOSORBIDE [Concomitant]
  3. FINASTERIDE [Concomitant]
  4. JALYN [Suspect]
     Dosage: 1CAPL AT NIGHT
     Route: 048
     Dates: start: 20110309
  5. PLAVIX [Concomitant]
  6. UNKNOWN MEDICATION [Concomitant]
     Indication: INFLAMMATION
  7. JUICE PLUS [Concomitant]

REACTIONS (1)
  - DRUG INEFFECTIVE [None]
